FAERS Safety Report 16579934 (Version 2)
Quarter: 2019Q3

REPORT INFORMATION
  Report Type: Spontaneous
  Country: US (occurrence: US)
  Receive Date: 20190716
  Receipt Date: 20190808
  Transmission Date: 20191004
  Serious: No
  Sender: FDA-Public Use
  Company Number: US-MYLANLABS-2019M1061169

PATIENT
  Age: 48 Year
  Sex: Male

DRUGS (1)
  1. VANCOMYCIN HYDROCHLORIDE FOR INJECTION USP [Suspect]
     Active Substance: VANCOMYCIN HYDROCHLORIDE
     Indication: PRODUCT USED FOR UNKNOWN INDICATION
     Dosage: 83.33 ML/HR OVER 180 MINS EVERY 8 HOURS,LATER CHANGED TO 125 ML/HR OVER 120 MINUTES EVERY 12 HOURS
     Route: 041
     Dates: start: 20190612

REACTIONS (3)
  - Product preparation issue [Unknown]
  - Therapeutic product effect increased [Recovered/Resolved]
  - Extra dose administered [Unknown]

NARRATIVE: CASE EVENT DATE: 201906
